FAERS Safety Report 7592415-8 (Version None)
Quarter: 2011Q3

REPORT INFORMATION
  Report Type: 
  Country: None (occurrence: None)
  Receive Date: 20110705
  Receipt Date: 20110705
  Transmission Date: 20111222
  Serious: Yes (Hospitalization)
  Sender: FDA-Public Use
  Company Number: None

PATIENT
  Sex: Male
  Weight: 113 kg

DRUGS (13)
  1. BUMEX [Concomitant]
  2. OXYCODONE [Concomitant]
  3. NORVASC [Concomitant]
  4. SPIRONOLACTONE [Concomitant]
  5. AUGMENTIN '125' [Concomitant]
  6. TRAZODONE HCL [Concomitant]
  7. PRAVASTATIN [Concomitant]
  8. LITHIUM CARBONATE [Suspect]
     Indication: BIPOLAR DISORDER
     Dosage: 300MG Q AM, 600MG Q HS BID PO CHRONIC
     Route: 048
  9. GLIPIZIDE [Concomitant]
  10. PROTONIX [Concomitant]
  11. NEURONTIN [Concomitant]
  12. POTASSIUM CHLORIDE ORAL [Concomitant]
  13. WARFARIN SODIUM [Concomitant]

REACTIONS (6)
  - ANTIPSYCHOTIC DRUG LEVEL ABOVE THERAPEUTIC [None]
  - HYPONATRAEMIA [None]
  - MENTAL STATUS CHANGES [None]
  - TREMOR [None]
  - CONFUSIONAL STATE [None]
  - RENAL FAILURE ACUTE [None]
